FAERS Safety Report 6789867-X (Version None)
Quarter: 2010Q2

REPORT INFORMATION
  Report Type: 
  Country: None (occurrence: None)
  Receive Date: 20100624
  Receipt Date: 20100615
  Transmission Date: 20101027
  Serious: Yes (Other)
  Sender: FDA-Public Use
  Company Number: FR-PFIZER INC-2010074654

PATIENT
  Age: 59 Year
  Sex: Female

DRUGS (2)
  1. AMLOR [Suspect]
     Indication: HYPERTENSION
     Dosage: 5 MG, UNK
     Dates: start: 20080101, end: 20090201
  2. AMLOR [Suspect]
     Dosage: 10 MG, UNK
     Dates: start: 20090201

REACTIONS (1)
  - STAPHYLOCOCCAL INFECTION [None]
